FAERS Safety Report 15135794 (Version 1)
Quarter: 2018Q3

REPORT INFORMATION
  Report Type: Spontaneous
  Country: US (occurrence: US)
  Receive Date: 20180617
  Receipt Date: 20180617
  Transmission Date: 20181010
  Serious: No
  Sender: FDA-Public Use
  Company Number: None

PATIENT
  Age: 57 Year
  Sex: Female
  Weight: 84.6 kg

DRUGS (6)
  1. CALCIUM [Concomitant]
     Active Substance: CALCIUM
  2. NYAMYC [Suspect]
     Active Substance: NYSTATIN
     Indication: FUNGAL SKIN INFECTION
     Dosage: ?          OTHER STRENGTH:UNITS PER GRAM;QUANTITY:15 GRAMS;?
     Route: 061
     Dates: start: 20180615, end: 20180616
  3. BENEFIBER [Concomitant]
     Active Substance: STARCH, WHEAT
  4. VITAMIN C [Concomitant]
     Active Substance: ASCORBIC ACID
  5. VITAMIN D [Concomitant]
     Active Substance: CHOLECALCIFEROL
  6. D?MANNOSE [Concomitant]

REACTIONS (5)
  - Application site inflammation [None]
  - Application site haemorrhage [None]
  - Hypersensitivity [None]
  - Stomatitis [None]
  - Application site pruritus [None]

NARRATIVE: CASE EVENT DATE: 20180616
